FAERS Safety Report 8307923-1 (Version None)
Quarter: 2012Q2

REPORT INFORMATION
  Report Type: 
  Country: None (occurrence: None)
  Receive Date: 20120424
  Receipt Date: 20120419
  Transmission Date: 20120825
  Serious: Yes (Hospitalization)
  Sender: FDA-Public Use
  Company Number: US-GLAXOSMITHKLINE-A0882184A

PATIENT
  Sex: Male

DRUGS (2)
  1. AVANDAMET [Suspect]
     Indication: DIABETES MELLITUS
     Route: 048
     Dates: start: 20070107, end: 20070717
  2. ROSIGLITAZONE MALEATE [Suspect]
     Indication: DIABETES MELLITUS
     Route: 048

REACTIONS (10)
  - POST PROCEDURAL COMPLICATION [None]
  - DYSPNOEA [None]
  - MALAISE [None]
  - FATIGUE [None]
  - ASTHENIA [None]
  - CORONARY ARTERY DISEASE [None]
  - POSTOPERATIVE RENAL FAILURE [None]
  - CARDIAC DISORDER [None]
  - DIZZINESS [None]
  - THROMBOCYTOPENIA [None]
